FAERS Safety Report 23170230 (Version 2)
Quarter: 2024Q1

REPORT INFORMATION
  Report Type: Spontaneous
  Country: US (occurrence: US)
  Receive Date: 20231110
  Receipt Date: 20240109
  Transmission Date: 20240409
  Serious: Yes (Other)
  Sender: FDA-Public Use
  Company Number: US-JNJFOC-20231111734

PATIENT
  Sex: Male

DRUGS (5)
  1. TYLENOL REGULAR STRENGTH [Suspect]
     Active Substance: ACETAMINOPHEN
     Indication: Migraine
     Dosage: 4-6 DAYS PER WEEK 3-4 TIMES A DAY, SECOND AND THIRD TRIMESTER
     Route: 064
     Dates: start: 201402, end: 201406
  2. TYLENOL EXTRA STRENGTH [Suspect]
     Active Substance: ACETAMINOPHEN
     Indication: Migraine
     Dosage: 4-6 DAYS PER WEEK 3-4 TIMES A DAY, SECOND AND THIRD TRIMESTER
     Route: 064
     Dates: start: 201402, end: 201406
  3. ACETAMINOPHEN [Suspect]
     Active Substance: ACETAMINOPHEN
     Indication: Migraine
     Dosage: 4-6 DAYS PER WEEK 3-4 TIMES A DAY, SECOND AND THIRD TRIMESTER
     Route: 064
     Dates: start: 201402, end: 201406
  4. ACETAMINOPHEN [Suspect]
     Active Substance: ACETAMINOPHEN
     Indication: Migraine
     Dosage: 4-6 DAYS PER WEEK 3-4 TIMES A DAY, SECOND AND THIRD TRIMESTER
     Route: 064
     Dates: start: 201402, end: 201406
  5. ACETAMINOPHEN [Suspect]
     Active Substance: ACETAMINOPHEN
     Indication: Migraine
     Dosage: 4-6 DAYS PER WEEK 3-4 TIMES A DAY, SECOND AND THIRD TRIMESTER
     Route: 064
     Dates: start: 201402, end: 201406

REACTIONS (2)
  - Autism spectrum disorder [Unknown]
  - Foetal exposure during pregnancy [Unknown]

NARRATIVE: CASE EVENT DATE: 20140101
